FAERS Safety Report 8208073-5 (Version None)
Quarter: 2012Q1

REPORT INFORMATION
  Report Type: 
  Country: None (occurrence: None)
  Receive Date: 20120314
  Receipt Date: 20120301
  Transmission Date: 20120608
  Serious: Yes (Hospitalization)
  Sender: FDA-Public Use
  Company Number: PHHY2012EC021899

PATIENT
  Sex: Female

DRUGS (1)
  1. DIOVAN HCT [Suspect]
     Indication: HYPERTENSION
     Dosage: 1 DF(80MG VALS/12.5MG HYDROCHLOROTHIAZIDE) DAILY
     Route: 048
     Dates: start: 20060201

REACTIONS (1)
  - OBESITY [None]
